FAERS Safety Report 8962310 (Version 4)
Quarter: 2013Q1

REPORT INFORMATION
  Report Type: Spontaneous
  Country: US (occurrence: None)
  Receive Date: 20121203
  Receipt Date: 20121226
  Transmission Date: 20140127
  Serious: Yes (Life-Threatening, Hospitalization, Disabling, Other)
  Sender: FDA-Public Use
  Company Number: ACO_33115_2012

PATIENT
  Age: 27 Year
  Sex: Female

DRUGS (1)
  1. AMPYRA (DALFAMPRIDINE) TABLET, 10MG [Suspect]
     Indication: PRODUCT USED FOR UNKNOWN INDICATION
     Dates: start: 20120906, end: 2012

REACTIONS (8)
  - Convulsion [None]
  - Abasia [None]
  - Pneumonia [None]
  - Dysstasia [None]
  - Asthenia [None]
  - Fall [None]
  - Memory impairment [None]
  - Aspiration [None]
